FAERS Safety Report 24534306 (Version 1)
Quarter: 2024Q4

REPORT INFORMATION
  Report Type: Spontaneous
  Country: US (occurrence: None)
  Receive Date: 20241021
  Receipt Date: 20241021
  Transmission Date: 20250114
  Serious: Yes (Other)
  Sender: Public
  Company Number: None

PATIENT
  Age: 19 Year
  Sex: Female
  Weight: 50.85 kg

DRUGS (1)
  1. VENOFER [Suspect]
     Active Substance: IRON SUCROSE
     Indication: Iron deficiency anaemia
     Dosage: OTHER FREQUENCY : Q WK FOR 5 WKS;?
     Route: 041
     Dates: start: 20241021

REACTIONS (2)
  - Peripheral swelling [None]
  - Urticaria [None]

NARRATIVE: CASE EVENT DATE: 20241021
